FAERS Safety Report 12100768 (Version 1)
Quarter: 2016Q1

REPORT INFORMATION
  Report Type: Spontaneous
  Country: GB (occurrence: GB)
  Receive Date: 20160222
  Receipt Date: 20160222
  Transmission Date: 20160526
  Serious: Yes (Death)
  Sender: FDA-Public Use
  Company Number: GB-FRESENIUS KABI-FK201600878

PATIENT
  Age: 63 Year
  Sex: Female
  Weight: 184 kg

DRUGS (11)
  1. COCODAMOL [Concomitant]
     Active Substance: ACETAMINOPHEN\CODEINE PHOSPHATE
  2. HYDROXYZINE [Concomitant]
     Active Substance: HYDROXYZINE\HYDROXYZINE HYDROCHLORIDE
  3. REMIFENTANIL [Concomitant]
     Active Substance: REMIFENTANIL
  4. ASPIRIN. [Concomitant]
     Active Substance: ASPIRIN
  5. ATORVASTATIN [Concomitant]
     Active Substance: ATORVASTATIN
  6. METHYLENE BLUE. [Concomitant]
     Active Substance: METHYLENE BLUE
  7. PROPOFOL. [Concomitant]
     Active Substance: PROPOFOL
  8. ROCURONIUM [Suspect]
     Active Substance: ROCURONIUM BROMIDE
     Indication: MUSCLE RELAXANT THERAPY
     Route: 042
  9. HUMULIN NOS [Concomitant]
     Active Substance: INSULIN HUMAN
  10. RAMIPRIL. [Concomitant]
     Active Substance: RAMIPRIL
  11. GLICLAZIDE [Concomitant]
     Active Substance: GLICLAZIDE

REACTIONS (2)
  - Cardiac arrest [Not Recovered/Not Resolved]
  - Anaphylactic reaction [Fatal]

NARRATIVE: CASE EVENT DATE: 20160203
